FAERS Safety Report 8245880-7 (Version None)
Quarter: 2012Q1

REPORT INFORMATION
  Report Type: 
  Country: None (occurrence: None)
  Receive Date: 20120328
  Receipt Date: 20120328
  Transmission Date: 20120608
  Serious: Yes (Other)
  Sender: FDA-Public Use
  Company Number: None

PATIENT
  Sex: Male

DRUGS (2)
  1. CLINDAMYCIN [Suspect]
     Indication: TOOTH ABSCESS
     Dosage: 300 MG TID PO
     Route: 048
     Dates: start: 20120224, end: 20120229
  2. CLINDAMYCIN [Suspect]
     Indication: TOOTH EXTRACTION
     Dosage: 300 MG TID PO
     Route: 048
     Dates: start: 20120224, end: 20120229

REACTIONS (2)
  - RASH GENERALISED [None]
  - PRURITUS [None]
